FAERS Safety Report 5480765-0 (Version None)
Quarter: 2007Q4

REPORT INFORMATION
  Report Type: 
  Country: None (occurrence: None)
  Receive Date: 20071009
  Receipt Date: 20070928
  Transmission Date: 20080405
  Serious: Yes (Death)
  Sender: FDA-Public Use
  Company Number: US-SHR-US-2007-006401

PATIENT
  Age: 61 Year
  Sex: Male

DRUGS (43)
  1. MAGNEVIST [Suspect]
     Dosage: UNK, 1 DOSE
     Route: 042
     Dates: start: 19980115, end: 19980115
  2. MAGNEVIST [Suspect]
     Dosage: UNK, 1 DOSE
     Route: 042
     Dates: start: 20000302, end: 20000302
  3. MAGNEVIST [Suspect]
     Dosage: UNK, 1 DOSE
     Route: 042
     Dates: start: 20010609, end: 20010609
  4. MAGNEVIST [Suspect]
     Dosage: UNK, 1 DOSE
     Route: 042
     Dates: start: 20010817, end: 20010817
  5. MAGNEVIST [Suspect]
     Dosage: UNK, 1 DOSE
     Route: 042
     Dates: start: 20020812, end: 20020812
  6. MAGNEVIST [Suspect]
     Dosage: UNK, 1 DOSE
     Route: 042
     Dates: start: 20040108, end: 20040108
  7. MAGNEVIST [Suspect]
     Dosage: 20 ML, 1 DOSE
     Route: 013
     Dates: start: 19980825, end: 19980825
  8. MAGNEVIST [Suspect]
     Dosage: UNK, 1 DOSE
     Dates: start: 20010515, end: 20010515
  9. CYCLOSPORINE [Concomitant]
     Dosage: 250 MG, 2X/DAY
     Dates: start: 19950715
  10. PREDNISONE [Concomitant]
     Dosage: 25 MG, 1X/DAY
     Dates: start: 19950715
  11. IMURAN [Concomitant]
     Dosage: 100 MG, 1X/DAY
     Dates: start: 19950715
  12. ACYCLOVIR [Concomitant]
     Dosage: 400 MG, 3X/DAY
     Dates: start: 19950715
  13. BACTRIM [Concomitant]
     Dosage: UNK, 1X/DAY
     Dates: start: 19950724
  14. CLOTRIMAZOLE [Concomitant]
     Dosage: 10 MG, 2X/DAY
     Dates: start: 19950724
  15. MAALOX                                  /USA/ [Concomitant]
     Dosage: 15 ML, 2X/DAY
     Dates: start: 19950724
  16. PROCARDIA XL [Concomitant]
     Dosage: 30 MG, 1X/DAY
     Dates: start: 19950724
  17. LASIX [Concomitant]
     Dosage: 40 MG, 2X/DAY
     Dates: start: 19950724
  18. OMNIPAQUE ^SCHERING^ [Concomitant]
     Indication: AORTOGRAM
     Dosage: 132 ML, 1 DOSE
     Route: 042
     Dates: start: 19961230, end: 19961230
  19. OMNIPAQUE ^SCHERING^ [Concomitant]
     Dosage: 20 ML, 1 DOSE
     Route: 013
     Dates: start: 19980825, end: 19980825
  20. INSULIN [Concomitant]
     Dates: start: 19961201
  21. CYSTO-CONRAY [Concomitant]
     Dosage: 200 ML, 1 DOSE
     Route: 017
     Dates: start: 19941107, end: 19941107
  22. THALLIUM (201 TL) [Concomitant]
     Dosage: 123 MBQ, 1 DOSE
     Route: 042
     Dates: start: 19941128, end: 19941128
  23. TECHNETIUM (99M TC) SESTAMIBI [Concomitant]
     Dosage: 502 MBQ, 1 DOSE
     Route: 042
     Dates: start: 19941128, end: 19941128
  24. HEXABRIX                                /SCH/ [Concomitant]
     Dosage: 167 ML, 1 DOSE
     Route: 042
     Dates: start: 19950530, end: 19950530
  25. CELLCEPT [Concomitant]
     Dates: start: 19980101
  26. MICRONASE [Concomitant]
  27. LIPITOR [Concomitant]
  28. LABETALOL [Concomitant]
     Dates: start: 19980101
  29. ZESTRIL [Concomitant]
     Dates: start: 19981001
  30. EPOGEN [Concomitant]
     Dosage: 6000 IU, UNK
     Dates: start: 20030520
  31. MANNITOL [Concomitant]
     Dosage: DURING DIALYSIS
  32. CALCIUM ACETATE [Concomitant]
  33. COLACE [Concomitant]
  34. ASPIRIN [Concomitant]
  35. NEPHROCAPS [Concomitant]
  36. ATENOLOL [Concomitant]
  37. COUMADIN [Concomitant]
  38. METRONIDAZOLE [Concomitant]
  39. CEFEPIME [Concomitant]
  40. ZEMPLAR [Concomitant]
     Dosage: ON DIALYSIS
  41. INDIUM (111 IN) [Concomitant]
  42. TECHNETIUM TC 99M METHYLENE DIPHOSPHONATE [Concomitant]
     Dosage: 803 MBQ, 1 DOSE
     Dates: start: 20040928, end: 20040928
  43. ARANESP [Concomitant]
     Dosage: 100 MG, UNK
     Dates: start: 20040917

REACTIONS (1)
  - NEPHROGENIC SYSTEMIC FIBROSIS [None]
